FAERS Safety Report 11875320 (Version 1)
Quarter: 2015Q4

REPORT INFORMATION
  Report Type: Spontaneous
  Country: US (occurrence: None)
  Receive Date: 20151228
  Receipt Date: 20151228
  Transmission Date: 20160305
  Serious: Yes (Hospitalization)
  Sender: FDA-Public Use
  Company Number: None

PATIENT
  Age: 73 Year
  Sex: Male
  Weight: 100.1 kg

DRUGS (1)
  1. ENOXAPARIN (GENERIC) [Suspect]
     Active Substance: ENOXAPARIN
     Route: 048
     Dates: start: 20150924, end: 20151001

REACTIONS (5)
  - Medical device complication [None]
  - Dysuria [None]
  - Haemorrhage [None]
  - Haematuria [None]
  - Haemoglobin abnormal [None]

NARRATIVE: CASE EVENT DATE: 20151007
